FAERS Safety Report 7945171 (Version 3)
Quarter: 2013Q2

REPORT INFORMATION
  Report Type: Spontaneous
  Country: MX (occurrence: MX)
  Receive Date: 20110516
  Receipt Date: 20130411
  Transmission Date: 20140414
  Serious: Yes (Death, Hospitalization, Other)
  Sender: FDA-Public Use
  Company Number: PHHY2011MX40389

PATIENT
  Age: 87 Year
  Sex: Female

DRUGS (1)
  1. CO-DIOVAN [Suspect]
     Indication: HYPERTENSION
     Dosage: 1 DF, (160 MG VALS AND 25 MG VILDA), DAILY
     Route: 048
     Dates: start: 20070706

REACTIONS (5)
  - Cerebral artery embolism [Fatal]
  - Cardiac arrest [Fatal]
  - Intracranial aneurysm [Unknown]
  - Nervous system disorder [Unknown]
  - Blood pressure increased [Unknown]
